FAERS Safety Report 24195394 (Version 4)
Quarter: 2024Q4

REPORT INFORMATION
  Report Type: Spontaneous
  Country: PT (occurrence: PT)
  Receive Date: 20240809
  Receipt Date: 20241021
  Transmission Date: 20250115
  Serious: Yes (Other)
  Sender: BIOVITRUM
  Company Number: None

PATIENT
  Age: 24 Year
  Sex: Female

DRUGS (2)
  1. DOPTELET [Suspect]
     Active Substance: AVATROMBOPAG MALEATE
     Indication: Immune thrombocytopenia
     Dosage: DOSE ESCALATION 20MG/DAY; 40 MG 3X WEEK AND 20 MG IN OTHER DAYS; 40 MG/DAY
     Route: 048
     Dates: start: 20240514, end: 20240705
  2. DIENOGEST 2 MG + ETHINYLESTRADIOL 0.03 MG [Concomitant]
     Indication: Product used for unknown indication
     Dosage: 1 DOSAGE FORM DAILY
     Route: 048

REACTIONS (2)
  - Low density lipoprotein increased [Not Recovered/Not Resolved]
  - Drug ineffective [Not Recovered/Not Resolved]

NARRATIVE: CASE EVENT DATE: 20240528
